FAERS Safety Report 20809464 (Version 10)
Quarter: 2023Q1

REPORT INFORMATION
  Report Type: Report from Study
  Country: CO (occurrence: CO)
  Receive Date: 20220510
  Receipt Date: 20230128
  Transmission Date: 20230418
  Serious: Yes (Hospitalization, Other)
  Sender: FDA-Public Use
  Company Number: CO-TAKEDA-2021TUS062263

PATIENT
  Age: 15 Year
  Sex: Male
  Weight: 47 kg

DRUGS (2)
  1. HUMAN IMMUNOGLOBULIN G\HYALURONIDASE RECOMBINANT HUMAN [Suspect]
     Active Substance: HUMAN IMMUNOGLOBULIN G\HYALURONIDASE RECOMBINANT HUMAN
     Indication: Primary immunodeficiency syndrome
     Dosage: 40 MILLIGRAM, MONTHLY
     Route: 058
     Dates: start: 20211001
  2. HUMAN IMMUNOGLOBULIN G\HYALURONIDASE RECOMBINANT HUMAN [Suspect]
     Active Substance: HUMAN IMMUNOGLOBULIN G\HYALURONIDASE RECOMBINANT HUMAN
     Dosage: 40 GRAM, MONTHLY
     Route: 058
     Dates: start: 20211001

REACTIONS (23)
  - Blood creatinine increased [Recovering/Resolving]
  - Blood urea increased [Recovering/Resolving]
  - Respiratory tract infection viral [Recovering/Resolving]
  - Nausea [Recovering/Resolving]
  - Diarrhoea [Recovering/Resolving]
  - Vomiting [Recovering/Resolving]
  - Abdominal pain [Recovering/Resolving]
  - Oesophageal infection [Unknown]
  - Oesophagitis ulcerative [Unknown]
  - Colitis erosive [Unknown]
  - Pulmonary fibrosis [Unknown]
  - COVID-19 [Unknown]
  - Renal disorder [Recovering/Resolving]
  - Oxygen saturation abnormal [Recovering/Resolving]
  - Hypervolaemia [Unknown]
  - Pleural effusion [Unknown]
  - Bacterial test positive [Unknown]
  - Skin bacterial infection [Unknown]
  - Gastrointestinal disorder [Unknown]
  - Abnormal faeces [Not Recovered/Not Resolved]
  - Blood pressure increased [Unknown]
  - Arthralgia [Recovered/Resolved]
  - Pyrexia [Recovered/Resolved]

NARRATIVE: CASE EVENT DATE: 20211001
